FAERS Safety Report 11416746 (Version 1)
Quarter: 2015Q3

REPORT INFORMATION
  Report Type: Report from Study
  Country: US (occurrence: US)
  Receive Date: 20150825
  Receipt Date: 20150825
  Transmission Date: 20151125
  Serious: Yes (Hospitalization, Other)
  Sender: FDA-Public Use
  Company Number: US-GILEAD-2015-0168955

PATIENT
  Age: 53 Year
  Sex: Male

DRUGS (1)
  1. AMBRISENTAN [Suspect]
     Active Substance: AMBRISENTAN
     Indication: PRODUCT USED FOR UNKNOWN INDICATION
     Dosage: 10 MG, QD
     Route: 065
     Dates: start: 20150226

REACTIONS (10)
  - Fall [Unknown]
  - Concussion [Unknown]
  - Loss of consciousness [Unknown]
  - Hypotension [Unknown]
  - Heart rate abnormal [Unknown]
  - Cardiomegaly [Unknown]
  - Seizure [Unknown]
  - Tachycardia [Unknown]
  - Swelling [Unknown]
  - Pneumonia [Unknown]
